FAERS Safety Report 5669555-3 (Version None)
Quarter: 2008Q1

REPORT INFORMATION
  Report Type: 
  Country: None (occurrence: None)
  Receive Date: 20080317
  Receipt Date: 20080311
  Transmission Date: 20080703
  Serious: Yes (Other)
  Sender: FDA-Public Use
  Company Number: PHEH2008US02169

PATIENT
  Age: 69 Year
  Sex: Female
  Weight: 86.621 kg

DRUGS (1)
  1. LAMISIL [Suspect]
     Indication: ONYCHOMYCOSIS
     Dosage: 250 MG, QD
     Route: 048
     Dates: start: 20080208, end: 20080210

REACTIONS (2)
  - COUGH [None]
  - PULMONARY CONGESTION [None]
